FAERS Safety Report 21213760 (Version 1)
Quarter: 2022Q3

REPORT INFORMATION
  Report Type: Spontaneous
  Country: US (occurrence: US)
  Receive Date: 20220816
  Receipt Date: 20220816
  Transmission Date: 20221026
  Serious: Yes (Other)
  Sender: FDA-Public Use
  Company Number: US-SA-SAC20220811000202

PATIENT
  Age: 53 Year
  Sex: Female

DRUGS (1)
  1. ZANTAC [Suspect]
     Active Substance: RANITIDINE HYDROCHLORIDE
     Indication: Intestinal ulcer
     Dosage: UNK, QD (UNKNOWN AT THIS TIME)
     Dates: start: 199006, end: 200505

REACTIONS (2)
  - Breast cancer stage I [Unknown]
  - Appendix cancer [Unknown]

NARRATIVE: CASE EVENT DATE: 20130401
